FAERS Safety Report 5121111-1 (Version None)
Quarter: 2006Q4

REPORT INFORMATION
  Report Type: 
  Country: None (occurrence: None)
  Receive Date: 20061002
  Receipt Date: 20060918
  Transmission Date: 20070319
  Serious: Yes (Other)
  Sender: FDA-Public Use
  Company Number: 2006113879

PATIENT
  Sex: Male

DRUGS (1)
  1. LYRICA [Suspect]
     Indication: NEUROPATHY
     Dosage: 75 MG,2 IN 1 D
     Dates: start: 20060901

REACTIONS (2)
  - CONDITION AGGRAVATED [None]
  - NEUROPATHY [None]
